FAERS Safety Report 23296203 (Version 4)
Quarter: 2024Q4

REPORT INFORMATION
  Report Type: Spontaneous
  Country: US (occurrence: US)
  Receive Date: 20231214
  Receipt Date: 20241118
  Transmission Date: 20250115
  Serious: Yes (Other)
  Sender: SANOFI AVENTIS
  Company Number: US-SANOFI-01873162

PATIENT
  Age: 84 Year
  Sex: Female

DRUGS (2)
  1. TOUJEO [Suspect]
     Active Substance: INSULIN GLARGINE
     Indication: Type 2 diabetes mellitus
     Dosage: 60 IU, BID
     Route: 065
  2. TOUJEO [Suspect]
     Active Substance: INSULIN GLARGINE
     Dosage: 35 IU QAM, 25 IU QPM BID
     Route: 058

REACTIONS (3)
  - Hip arthroplasty [Unknown]
  - Gait inability [Unknown]
  - Off label use [Unknown]
